FAERS Safety Report 23452535 (Version 1)
Quarter: 2024Q1

REPORT INFORMATION
  Report Type: Spontaneous
  Country: US (occurrence: None)
  Receive Date: 20240129
  Receipt Date: 20240129
  Transmission Date: 20240410
  Serious: Yes (Death)
  Sender: FDA-Public Use
  Company Number: None

PATIENT
  Age: 70 Year
  Sex: Male

DRUGS (1)
  1. ENTECAVIR [Suspect]
     Active Substance: ENTECAVIR
     Dosage: FREQUENCY : DAILY;?
     Route: 048
     Dates: start: 201607

REACTIONS (1)
  - Death [None]

NARRATIVE: CASE EVENT DATE: 20240124
